FAERS Safety Report 8270476-0 (Version None)
Quarter: 2012Q2

REPORT INFORMATION
  Report Type: 
  Country: None (occurrence: None)
  Receive Date: 20120410
  Receipt Date: 20120328
  Transmission Date: 20120825
  Serious: Yes (Disabling)
  Sender: FDA-Public Use
  Company Number: BD-ASTELLAS-2012US001519

PATIENT
  Age: 15 Year
  Sex: Female
  Weight: 37 kg

DRUGS (2)
  1. AMBISOME [Suspect]
     Indication: VISCERAL LEISHMANIASIS
     Dosage: 30 MG/KG, UNKNOWN/D
     Route: 065
     Dates: start: 20110203
  2. ALBENDAZOLE [Concomitant]
     Indication: PRODUCT USED FOR UNKNOWN INDICATION
     Dosage: UNK
     Route: 065
     Dates: end: 20110203

REACTIONS (3)
  - GAIT DISTURBANCE [None]
  - MYALGIA [None]
  - ASTHENIA [None]
